FAERS Safety Report 16746955 (Version 2)
Quarter: 2020Q1

REPORT INFORMATION
  Report Type: Report from Study
  Country: US (occurrence: US)
  Receive Date: 20190827
  Receipt Date: 20200121
  Transmission Date: 20200409
  Serious: Yes (Hospitalization)
  Sender: FDA-Public Use
  Company Number: US-SA-2019SA234921

PATIENT
  Age: 53 Year
  Sex: Male

DRUGS (1)
  1. TERIFLUNOMIDE. [Suspect]
     Active Substance: TERIFLUNOMIDE
     Indication: MULTIPLE SCLEROSIS
     Dosage: 14 MG, QD
     Route: 048
     Dates: start: 20190626

REACTIONS (2)
  - Fatigue [Unknown]
  - Hospitalisation [Unknown]

NARRATIVE: CASE EVENT DATE: 201906
